FAERS Safety Report 12776939 (Version 1)
Quarter: 2016Q3

REPORT INFORMATION
  Report Type: Spontaneous
  Country: US (occurrence: US)
  Receive Date: 20160923
  Receipt Date: 20160923
  Transmission Date: 20161109
  Serious: Yes (Hospitalization)
  Sender: FDA-Public Use
  Company Number: US-ASTRAZENECA-2016SF00227

PATIENT
  Age: 43 Year
  Sex: Female
  Weight: 52.4 kg

DRUGS (9)
  1. NEXIUM [Suspect]
     Active Substance: ESOMEPRAZOLE MAGNESIUM
     Indication: GASTROOESOPHAGEAL REFLUX DISEASE
     Route: 048
     Dates: start: 2001, end: 2001
  2. NEXIUM [Suspect]
     Active Substance: ESOMEPRAZOLE MAGNESIUM
     Indication: GASTROOESOPHAGEAL REFLUX DISEASE
     Dosage: GENERIC
     Route: 048
  3. NEXIUM [Suspect]
     Active Substance: ESOMEPRAZOLE MAGNESIUM
     Indication: GASTROOESOPHAGEAL REFLUX DISEASE
     Route: 048
     Dates: start: 2001, end: 20160915
  4. PRILOSEC [Suspect]
     Active Substance: OMEPRAZOLE MAGNESIUM
     Indication: GASTROOESOPHAGEAL REFLUX DISEASE
     Route: 048
  5. XOLAIR [Concomitant]
     Active Substance: OMALIZUMAB
     Indication: ASTHMA
  6. XOLAIR [Concomitant]
     Active Substance: OMALIZUMAB
     Indication: MULTIPLE ALLERGIES
  7. BONIVA [Concomitant]
     Active Substance: IBANDRONATE SODIUM
     Indication: OSTEOPOROSIS
  8. LAMOTRIGINE. [Concomitant]
     Active Substance: LAMOTRIGINE
     Indication: TREMOR
     Route: 048
  9. CLONIDINE HCL [Concomitant]
     Active Substance: CLONIDINE HYDROCHLORIDE
     Indication: BLOOD PRESSURE ABNORMAL
     Dosage: 0.1MG UNKNOWN
     Route: 048

REACTIONS (48)
  - Colitis ischaemic [Unknown]
  - Gastrointestinal inflammation [Unknown]
  - Vitamin B12 decreased [Unknown]
  - Calcium deficiency [Unknown]
  - Alopecia [Unknown]
  - Pruritus [Unknown]
  - Fibromyalgia [Unknown]
  - Dyspepsia [Unknown]
  - Abdominal distension [Unknown]
  - Erythema [Unknown]
  - Tremor [Unknown]
  - Facial bones fracture [Unknown]
  - Anxiety [Unknown]
  - Depression [Unknown]
  - Blood magnesium decreased [Unknown]
  - Chronic fatigue syndrome [Unknown]
  - Drug ineffective [Unknown]
  - Amnesia [Unknown]
  - Rhinitis [Unknown]
  - Eye disorder [Unknown]
  - Fungal infection [Unknown]
  - Influenza like illness [Unknown]
  - Acute sinusitis [Unknown]
  - Flatulence [Unknown]
  - Hypersensitivity [Unknown]
  - Dehydration [Unknown]
  - Palpitations [Unknown]
  - Asthma [Unknown]
  - Nausea [Unknown]
  - Abdominal discomfort [Unknown]
  - Hypertension [Unknown]
  - Diarrhoea [Unknown]
  - Abdominal pain upper [Unknown]
  - Vision blurred [Unknown]
  - Fall [Unknown]
  - Bowel movement irregularity [Unknown]
  - Fluid retention [Unknown]
  - Sinus congestion [Unknown]
  - Clostridium difficile infection [Unknown]
  - Osteoporosis [Unknown]
  - Dysphagia [Unknown]
  - Headache [Unknown]
  - Photosensitivity reaction [Unknown]
  - Muscular weakness [Unknown]
  - Product use issue [Unknown]
  - Off label use [Unknown]
  - Dizziness [Unknown]
  - Myalgia [Unknown]

NARRATIVE: CASE EVENT DATE: 1994
